FAERS Safety Report 24439364 (Version 1)
Quarter: 2024Q4

REPORT INFORMATION
  Report Type: Spontaneous
  Country: US (occurrence: None)
  Receive Date: 20241014
  Receipt Date: 20241014
  Transmission Date: 20250115
  Serious: Yes (Other)
  Sender: Public
  Company Number: None

PATIENT
  Age: 54 Year
  Sex: Female
  Weight: 63 kg

DRUGS (14)
  1. TIZANIDINE [Suspect]
     Active Substance: TIZANIDINE
     Indication: Cervicogenic headache
     Dosage: OTHER QUANTITY : 1 TABLET(S);?FREQUENCY : AT BEDTIME;?
     Route: 048
     Dates: start: 20240929, end: 20241012
  2. TIZANIDINE [Suspect]
     Active Substance: TIZANIDINE
     Indication: Musculoskeletal stiffness
  3. FAMOTIDINE [Suspect]
     Active Substance: FAMOTIDINE
  4. Gaba[emtom [Concomitant]
  5. Dezvenlafaxine [Concomitant]
  6. WELLBUTRIN [Concomitant]
  7. METOPROLOL [Concomitant]
  8. AIMOVIG [Concomitant]
     Active Substance: ERENUMAB-AOOE
  9. FAMOTIDINE [Concomitant]
  10. PANTOPRAZOLE [Concomitant]
  11. TIZANIDINE [Concomitant]
  12. estrpdiol [Concomitant]
  13. VITAMIN D3 [Concomitant]
     Active Substance: CHOLECALCIFEROL
  14. multivitamin [Concomitant]

REACTIONS (6)
  - Fatigue [None]
  - Malaise [None]
  - Arthralgia [None]
  - Therapy change [None]
  - Therapy cessation [None]
  - Loss of personal independence in daily activities [None]

NARRATIVE: CASE EVENT DATE: 20241013
